FAERS Safety Report 15884460 (Version 1)
Quarter: 2019Q1

REPORT INFORMATION
  Report Type: Spontaneous
  Country: FR (occurrence: FR)
  Receive Date: 20190129
  Receipt Date: 20190129
  Transmission Date: 20190417
  Serious: Yes (Hospitalization)
  Sender: FDA-Public Use
  Company Number: FR-PFIZER INC-2019035011

PATIENT
  Age: 41 Year
  Sex: Female
  Weight: 53 kg

DRUGS (2)
  1. SPIRAMYCIN II [Suspect]
     Active Substance: SPIRAMYCIN
     Indication: TOOTHACHE
     Dosage: 1 DF, 1X/DAY
     Route: 048
     Dates: start: 20181222, end: 20181222
  2. IBUPROFEN. [Suspect]
     Active Substance: IBUPROFEN
     Indication: TOOTHACHE
     Dosage: 800 MG, 1X/DAY
     Route: 048
     Dates: start: 20181222, end: 20181222

REACTIONS (3)
  - Rash maculo-papular [Recovered/Resolved]
  - Oedema [Recovered/Resolved]
  - Rash pruritic [Recovered/Resolved]

NARRATIVE: CASE EVENT DATE: 20181222
